FAERS Safety Report 14841560 (Version 1)
Quarter: 2018Q2

REPORT INFORMATION
  Report Type: Spontaneous
  Country: US (occurrence: US)
  Receive Date: 20180503
  Receipt Date: 20180503
  Transmission Date: 20180711
  Serious: Yes (Other)
  Sender: FDA-Public Use
  Company Number: US-TEVA-2018-US-888883

PATIENT
  Age: 71 Year
  Sex: Female

DRUGS (2)
  1. WARFARIN [Suspect]
     Active Substance: WARFARIN
     Route: 065
  2. ELIQUIS [Concomitant]
     Active Substance: APIXABAN

REACTIONS (3)
  - Gastrointestinal haemorrhage [Unknown]
  - Contusion [Unknown]
  - Haemorrhage [Unknown]
